FAERS Safety Report 25258514 (Version 1)
Quarter: 2025Q2

REPORT INFORMATION
  Report Type: Report from Study
  Country: US (occurrence: US)
  Receive Date: 20250501
  Receipt Date: 20250501
  Transmission Date: 20250717
  Serious: Yes (Other)
  Sender: ROCHE
  Company Number: US-ROCHE-10000269859

PATIENT
  Sex: Female
  Weight: 71.21 kg

DRUGS (11)
  1. RITUXAN [Suspect]
     Active Substance: RITUXIMAB
     Indication: Multiple sclerosis
     Route: 065
  2. TYLENOL [Concomitant]
     Active Substance: ACETAMINOPHEN
  3. ACETYLCYSTEINE [Concomitant]
     Active Substance: ACETYLCYSTEINE
  4. VITAMIN C [Concomitant]
     Active Substance: ASCORBIC ACID
  5. VITAMIN D3 [Concomitant]
     Active Substance: CHOLECALCIFEROL
  6. VOLTAREN [Concomitant]
     Active Substance: DICLOFENAC SODIUM
  7. LIDODERM [Concomitant]
     Active Substance: LIDOCAINE
  8. FISH OIL [Concomitant]
     Active Substance: FISH OIL
  9. QUERCETIN [Concomitant]
     Active Substance: QUERCETIN
  10. RIBOFLAVIN [Concomitant]
     Active Substance: RIBOFLAVIN
  11. KLOR-CON [Concomitant]
     Active Substance: POTASSIUM CHLORIDE

REACTIONS (16)
  - Off label use [Unknown]
  - Eating disorder [Unknown]
  - Neutropenia [Unknown]
  - Sepsis [Unknown]
  - Nausea [Unknown]
  - Dysphagia [Unknown]
  - Odynophagia [Unknown]
  - Oesophageal manometry [Unknown]
  - Abdominal pain [Unknown]
  - Early satiety [Unknown]
  - Abdominal distension [Unknown]
  - Abdominal distension [Unknown]
  - Haematochezia [Unknown]
  - Diarrhoea [Unknown]
  - Constipation [Unknown]
  - Headache [Unknown]
